FAERS Safety Report 15951273 (Version 3)
Quarter: 2019Q1

REPORT INFORMATION
  Report Type: Report from Study
  Country: US (occurrence: US)
  Receive Date: 20190212
  Receipt Date: 20190219
  Transmission Date: 20190417
  Serious: Yes (Death)
  Sender: FDA-Public Use
  Company Number: US-PFIZER INC-2019060089

PATIENT
  Age: 56 Year
  Sex: Male

DRUGS (7)
  1. VINCRISTINE SULFATE. [Suspect]
     Active Substance: VINCRISTINE SULFATE
     Indication: SMALL CELL LUNG CANCER
     Dosage: UNK, DURATION OF 10 MONTHS
  2. PROCARBAZINE [Suspect]
     Active Substance: PROCARBAZINE
     Indication: SMALL CELL LUNG CANCER
     Dosage: UNK, DURATION OF 10 MONTHS
  3. ETOPOSIDE. [Suspect]
     Active Substance: ETOPOSIDE
     Indication: SMALL CELL LUNG CANCER
     Dosage: UNK, DURATION OF 10 MONTHS
  4. CYCLOPHOSPHAMIDE. [Suspect]
     Active Substance: CYCLOPHOSPHAMIDE
     Indication: SMALL CELL LUNG CANCER
     Dosage: UNK, DURATION OF 10 MONTHS
  5. ADRIAMYCIN [Suspect]
     Active Substance: DOXORUBICIN HYDROCHLORIDE
     Indication: SMALL CELL LUNG CANCER
     Dosage: UNK, DURATION OF 10 MONTHS
  6. METHOTREXATE SODIUM. [Suspect]
     Active Substance: METHOTREXATE SODIUM
     Indication: SMALL CELL LUNG CANCER
     Dosage: UNK, DURATION OF 10 MONTHS
  7. LOMUSTINE. [Suspect]
     Active Substance: LOMUSTINE
     Indication: SMALL CELL LUNG CANCER
     Dosage: UNK, DURATION OF 10 MONTHS

REACTIONS (2)
  - Second primary malignancy [Fatal]
  - Acute myeloid leukaemia [Fatal]
